FAERS Safety Report 4717300-8 (Version None)
Quarter: 2005Q3

REPORT INFORMATION
  Report Type: 
  Country: None (occurrence: None)
  Receive Date: 20050719
  Receipt Date: 20050714
  Transmission Date: 20060218
  Serious: Yes (Hospitalization)
  Sender: FDA-Public Use
  Company Number: 05-07-1195

PATIENT
  Age: 70 Year
  Sex: Male

DRUGS (1)
  1. CLOZAPINE [Suspect]
     Indication: SCHIZOPHRENIA
     Dosage: 300-350MG QD ORAL
     Route: 048
     Dates: start: 20020501, end: 20050701

REACTIONS (1)
  - DECUBITUS ULCER [None]
